FAERS Safety Report 21471601 (Version 4)
Quarter: 2023Q4

REPORT INFORMATION
  Report Type: Spontaneous
  Country: US (occurrence: US)
  Receive Date: 20221018
  Receipt Date: 20231120
  Transmission Date: 20240110
  Serious: Yes (Other)
  Sender: FDA-Public Use
  Company Number: US-PFIZER INC-PV202200082627

PATIENT
  Age: 66 Year
  Sex: Female

DRUGS (1)
  1. XELJANZ XR [Suspect]
     Active Substance: TOFACITINIB CITRATE
     Indication: Rheumatoid arthritis
     Dosage: 11 MG, DAILY
     Route: 048

REACTIONS (10)
  - Tooth extraction [Unknown]
  - Back pain [Not Recovered/Not Resolved]
  - Spinal claudication [Not Recovered/Not Resolved]
  - Fatigue [Unknown]
  - Musculoskeletal disorder [Unknown]
  - Snoring [Unknown]
  - Pain in jaw [Not Recovered/Not Resolved]
  - Fungal skin infection [Recovered/Resolved]
  - Osteoarthritis [Unknown]
  - Sticky skin [Unknown]

NARRATIVE: CASE EVENT DATE: 20220101
